FAERS Safety Report 20186613 (Version 1)
Quarter: 2021Q4

REPORT INFORMATION
  Report Type: Report from Study
  Country: CO (occurrence: CO)
  Receive Date: 20211215
  Receipt Date: 20211215
  Transmission Date: 20220303
  Serious: Yes (Hospitalization)
  Sender: FDA-Public Use
  Company Number: CO-NOVARTISPH-NVSC2021CO195905

PATIENT
  Sex: Female

DRUGS (2)
  1. KISQALI [Suspect]
     Active Substance: RIBOCICLIB
     Indication: Breast cancer metastatic
     Dosage: 600 MG, QD
     Route: 048
  2. FEMARA [Suspect]
     Active Substance: LETROZOLE
     Indication: Breast cancer
     Dosage: 2.5 MG, QD
     Route: 048

REACTIONS (11)
  - COVID-19 [Unknown]
  - Poor quality sleep [Unknown]
  - Terminal insomnia [Unknown]
  - Laziness [Unknown]
  - Peripheral swelling [Unknown]
  - Muscle spasms [Unknown]
  - Alopecia [Unknown]
  - Arthralgia [Unknown]
  - Myalgia [Unknown]
  - Dry skin [Unknown]
  - Skin discolouration [Unknown]
